FAERS Safety Report 14973019 (Version 1)
Quarter: 2018Q2

REPORT INFORMATION
  Report Type: Spontaneous
  Country: FR (occurrence: FR)
  Receive Date: 20180605
  Receipt Date: 20180605
  Transmission Date: 20180711
  Serious: Yes (Hospitalization)
  Sender: FDA-Public Use
  Company Number: FR-TEVA-2018-FR-899730

PATIENT
  Age: 72 Year
  Sex: Male
  Weight: 86 kg

DRUGS (4)
  1. PERMIXON 160 MG, G?LULE [Suspect]
     Active Substance: HERBALS\SAW PALMETTO
     Route: 048
     Dates: end: 201501
  2. TRANDOLAPRIL. [Suspect]
     Active Substance: TRANDOLAPRIL
     Route: 048
     Dates: start: 201304, end: 201501
  3. ALFUZOSINE (CHLORHYDRATE D^) [Suspect]
     Active Substance: ALFUZOSIN HYDROCHLORIDE
     Route: 048
     Dates: end: 201501
  4. ATENOLOL. [Suspect]
     Active Substance: ATENOLOL
     Route: 048
     Dates: end: 201501

REACTIONS (1)
  - Pancreatitis acute [Recovered/Resolved]

NARRATIVE: CASE EVENT DATE: 20150114
